FAERS Safety Report 14194019 (Version 1)
Quarter: 2017Q4

REPORT INFORMATION
  Report Type: Spontaneous
  Country: US (occurrence: US)
  Receive Date: 20171116
  Receipt Date: 20171116
  Transmission Date: 20180321
  Serious: Yes (Other)
  Sender: FDA-Public Use
  Company Number: US-ACCORD-061034

PATIENT
  Age: 57 Year
  Sex: Male

DRUGS (9)
  1. METHOTREXATE. [Concomitant]
     Active Substance: METHOTREXATE
     Dosage: ON DAYS 1, 3, 6, AND 11 POSTTRANSPLANT
     Route: 042
  2. URSODEOXYCHOLIC ACID [Concomitant]
     Active Substance: URSODIOL
  3. TAMSULOSIN/TAMSULOSIN HYDROCHLORIDE [Concomitant]
  4. SIROLIMUS. [Concomitant]
     Active Substance: SIROLIMUS
     Indication: PROPHYLAXIS AGAINST GRAFT VERSUS HOST DISEASE
  5. ACICLOVIR [Concomitant]
     Active Substance: ACYCLOVIR
  6. FLUCONAZOLE. [Concomitant]
     Active Substance: FLUCONAZOLE
  7. CEFTRIAXONE. [Concomitant]
     Active Substance: CEFTRIAXONE
  8. TACROLIMUS. [Suspect]
     Active Substance: TACROLIMUS
     Indication: PROPHYLAXIS AGAINST GRAFT VERSUS HOST DISEASE
  9. METOPROLOL. [Concomitant]
     Active Substance: METOPROLOL

REACTIONS (3)
  - Myalgia [Unknown]
  - Oesophageal achalasia [Recovered/Resolved]
  - Bone pain [Unknown]
